FAERS Safety Report 24898439 (Version 1)
Quarter: 2025Q1

REPORT INFORMATION
  Report Type: Report from Study
  Country: US (occurrence: US)
  Receive Date: 20250129
  Receipt Date: 20250129
  Transmission Date: 20250409
  Serious: No
  Sender: SUNOVION
  Company Number: US-SUMITOMO PHARMA SWITZERLAND GMBH-2025SPA000594

PATIENT

DRUGS (15)
  1. ORGOVYX [Suspect]
     Active Substance: RELUGOLIX
     Indication: Prostate cancer
     Dosage: 360 MG, SINGLE
     Route: 048
     Dates: start: 20241127, end: 20241127
  2. ORGOVYX [Suspect]
     Active Substance: RELUGOLIX
     Dosage: 120 MG, QD
     Route: 048
     Dates: start: 20241128
  3. ABIRATERONE [Concomitant]
     Active Substance: ABIRATERONE
     Route: 065
  4. ATORVASTATIN [Concomitant]
     Active Substance: ATORVASTATIN
     Route: 065
  5. BENAZEPRIL [Concomitant]
     Active Substance: BENAZEPRIL HYDROCHLORIDE
     Route: 065
  6. CARVEDILOL [Concomitant]
     Active Substance: CARVEDILOL
     Route: 065
  7. CLOPIDOGREL [Concomitant]
     Active Substance: CLOPIDOGREL BISULFATE
     Route: 065
  8. EZETIMIBE [Concomitant]
     Active Substance: EZETIMIBE
     Route: 065
  9. FAMOTIDINE [Concomitant]
     Active Substance: FAMOTIDINE
     Route: 065
  10. FUROSEMIDE [Concomitant]
     Active Substance: FUROSEMIDE
     Route: 065
  11. IBUPROFEN [Concomitant]
     Active Substance: IBUPROFEN
     Route: 065
  12. OMEPRAZOLE [Concomitant]
     Active Substance: OMEPRAZOLE
     Route: 065
  13. PREDNISONE [Concomitant]
     Active Substance: PREDNISONE
     Route: 065
  14. REPATHA [Concomitant]
     Active Substance: EVOLOCUMAB
     Route: 065
  15. TAMSULOSIN [Concomitant]
     Active Substance: TAMSULOSIN
     Route: 065

REACTIONS (1)
  - Hot flush [Unknown]
